FAERS Safety Report 10416847 (Version 2)
Quarter: 2014Q3

REPORT INFORMATION
  Report Type: Spontaneous
  Country: US (occurrence: None)
  Receive Date: 20140826
  Receipt Date: 20140912
  Transmission Date: 20150326
  Serious: Yes (Hospitalization, Other)
  Sender: FDA-Public Use
  Company Number: 2014SMT00058

PATIENT
  Age: 57 Year
  Sex: Male
  Weight: 176.9 kg

DRUGS (18)
  1. NEURONTIN [Concomitant]
     Active Substance: GABAPENTIN
  2. DULCOLAX [Concomitant]
     Active Substance: BISACODYL OR DOCUSATE SODIUM
  3. HEPARIN SODIUM. [Concomitant]
     Active Substance: HEPARIN SODIUM
  4. PLAVIX [Concomitant]
     Active Substance: CLOPIDOGREL BISULFATE
  5. NOVOLOG [Concomitant]
     Active Substance: INSULIN ASPART
  6. VITAMIN D [Concomitant]
     Active Substance: CHOLECALCIFEROL
  7. MIDODRINE [Concomitant]
     Active Substance: MIDODRINE
  8. COUMADIN [Concomitant]
     Active Substance: WARFARIN SODIUM
  9. REGRANEX [Suspect]
     Active Substance: BECAPLERMIN
     Indication: DIABETIC ULCER
     Dates: start: 201406, end: 201408
  10. COREG [Concomitant]
     Active Substance: CARVEDILOL
  11. LOTRISONE CREAM [Concomitant]
  12. DAKINS [Concomitant]
  13. SENSIPAR [Concomitant]
     Active Substance: CINACALCET HYDROCHLORIDE
  14. LANTUS [Concomitant]
     Active Substance: INSULIN GLARGINE
  15. PHOSLO [Concomitant]
     Active Substance: CALCIUM ACETATE
  16. ELAVIL [Concomitant]
     Active Substance: AMITRIPTYLINE HYDROCHLORIDE
  17. NORCO [Concomitant]
     Active Substance: ACETAMINOPHEN\HYDROCODONE BITARTRATE
  18. CYMBALTA [Concomitant]
     Active Substance: DULOXETINE HYDROCHLORIDE

REACTIONS (15)
  - Pallor [None]
  - Wound complication [None]
  - Pain [None]
  - Infected skin ulcer [None]
  - Blood glucose increased [None]
  - Oedema [None]
  - No therapeutic response [None]
  - Bloody discharge [None]
  - Dizziness [None]
  - Anaemia [None]
  - Oedema peripheral [None]
  - Dialysis [None]
  - Morganella infection [None]
  - Wound infection bacterial [None]
  - Procedural hypotension [None]

NARRATIVE: CASE EVENT DATE: 201406
